FAERS Safety Report 9619795 (Version 2)
Quarter: 2013Q4

REPORT INFORMATION
  Report Type: Spontaneous
  Country: US (occurrence: US)
  Receive Date: 20131014
  Receipt Date: 20131014
  Transmission Date: 20140711
  Serious: Yes (Hospitalization)
  Sender: FDA-Public Use
  Company Number: US-BRISTOL-MYERS SQUIBB COMPANY-19416007

PATIENT
  Age: 83 Year
  Sex: Male
  Weight: 93.42 kg

DRUGS (2)
  1. METFORMIN HCL [Suspect]
  2. EFFEXOR XR [Suspect]

REACTIONS (4)
  - Kidney infection [Unknown]
  - Acidosis [Unknown]
  - Dizziness [Unknown]
  - Syncope [Unknown]
